FAERS Safety Report 26139280 (Version 1)
Quarter: 2025Q4

REPORT INFORMATION
  Report Type: Spontaneous
  Country: GB (occurrence: GB)
  Receive Date: 20251210
  Receipt Date: 20251210
  Transmission Date: 20260117
  Serious: Yes (Death, Hospitalization, Other)
  Sender: SOLARIS PHARMA CORPORATION
  Company Number: GB-SPC-000762

PATIENT
  Sex: Male

DRUGS (2)
  1. METRONIDAZOLE [Suspect]
     Active Substance: METRONIDAZOLE
     Indication: Clostridium difficile infection
     Route: 042
     Dates: start: 20241116
  2. VANCOMYCIN [Suspect]
     Active Substance: VANCOMYCIN
     Indication: Clostridium difficile infection
     Route: 048
     Dates: start: 20241116

REACTIONS (5)
  - Disease progression [Fatal]
  - Clostridium difficile infection [Fatal]
  - Myocardial infarction [Fatal]
  - Septic shock [Fatal]
  - Product use in unapproved indication [Unknown]

NARRATIVE: CASE EVENT DATE: 20241116
